FAERS Safety Report 17949391 (Version 1)
Quarter: 2020Q2

REPORT INFORMATION
  Report Type: Spontaneous
  Country: FR (occurrence: FR)
  Receive Date: 20200626
  Receipt Date: 20200626
  Transmission Date: 20200714
  Serious: Yes (Death, Hospitalization)
  Sender: FDA-Public Use
  Company Number: FR-ACCORD-187122

PATIENT
  Age: 85 Year
  Sex: Female
  Weight: 77 kg

DRUGS (10)
  1. COUMADIN [Concomitant]
     Active Substance: WARFARIN SODIUM
     Indication: ATRIAL FIBRILLATION
     Route: 048
     Dates: start: 20190908, end: 20190912
  2. BISOPROLOL [Suspect]
     Active Substance: BISOPROLOL
     Indication: ATRIAL FIBRILLATION
     Route: 048
     Dates: start: 20190826, end: 20190912
  3. GINKGO EXTRACT\HEPTAMINOL\TROXERUTIN [Concomitant]
     Active Substance: GINKGO\HEPTAMINOL\TROXERUTIN
     Route: 048
  4. HEPARIN [Concomitant]
     Active Substance: HEPARIN SODIUM
     Indication: ATRIAL FIBRILLATION
     Route: 042
     Dates: start: 20190905, end: 20190912
  5. XARELTO [Suspect]
     Active Substance: RIVAROXABAN
     Indication: ATRIAL FIBRILLATION
     Dosage: STRENGTH: 20 MG
     Route: 048
     Dates: start: 20190826, end: 20190905
  6. APROVEL [Concomitant]
     Active Substance: IRBESARTAN
     Route: 048
  7. ASPIRIN PROTECT [Concomitant]
     Active Substance: ASPIRIN
     Dosage: STRENGTH: 100 MG,
     Route: 048
  8. FUROSEMIDE. [Suspect]
     Active Substance: FUROSEMIDE
     Indication: ATRIAL FIBRILLATION
     Route: 048
     Dates: start: 20190826, end: 20190912
  9. AMIODARONE [Suspect]
     Active Substance: AMIODARONE
     Indication: ATRIAL FIBRILLATION
     Route: 048
     Dates: start: 20190826, end: 20190912
  10. PARACETAMOL [Concomitant]
     Active Substance: ACETAMINOPHEN
     Dosage: 1 TO 3 G / D
     Route: 048

REACTIONS (3)
  - Shock [Fatal]
  - Interstitial lung disease [Fatal]
  - Off label use [Unknown]

NARRATIVE: CASE EVENT DATE: 20190911
